FAERS Safety Report 9070078 (Version 1)
Quarter: 2013Q1

REPORT INFORMATION
  Report Type: Report from Study
  Country: US (occurrence: US)
  Receive Date: 20130129
  Receipt Date: 20130129
  Transmission Date: 20140127
  Serious: No
  Sender: FDA-Public Use
  Company Number: US-ABBOTT-12P-163-0938391-00

PATIENT
  Age: 41 Year
  Sex: Male
  Weight: 127.12 kg

DRUGS (5)
  1. HUMIRA 40 MG/0.8 ML PEN [Suspect]
     Indication: PSORIASIS
     Route: 058
     Dates: start: 20120427
  2. UNSPECIFIED INGREDIENT [Concomitant]
     Indication: DEPRESSION
  3. CLARITIN [Concomitant]
     Indication: HYPERSENSITIVITY
  4. IBUPROFEN [Concomitant]
     Indication: PRODUCT USED FOR UNKNOWN INDICATION
  5. NASONEX [Concomitant]
     Indication: HYPERSENSITIVITY

REACTIONS (1)
  - Headache [Not Recovered/Not Resolved]
